FAERS Safety Report 11058670 (Version 2)
Quarter: 2015Q2

REPORT INFORMATION
  Report Type: Spontaneous
  Country: GB (occurrence: GB)
  Receive Date: 20150423
  Receipt Date: 20150529
  Transmission Date: 20150821
  Serious: Yes (Hospitalization)
  Sender: FDA-Public Use
  Company Number: GB-SUN PHARMACEUTICAL INDUSTRIES LTD-2015RR-96007

PATIENT
  Age: 70 Year
  Sex: Female

DRUGS (17)
  1. AZD2281 [Suspect]
     Active Substance: OLAPARIB
     Dosage: 300 MG, BID
     Route: 048
     Dates: start: 20141212, end: 20141215
  2. DEXAMETHASONE. [Suspect]
     Active Substance: DEXAMETHASONE
     Indication: SUPERIOR VENA CAVA OCCLUSION
     Dosage: 8 MG, QD
     Route: 048
     Dates: start: 20150207, end: 20150216
  3. LETROZOLE. [Suspect]
     Active Substance: LETROZOLE
     Indication: BREAST CANCER
     Dosage: 2.5 MG, DAILY
     Route: 065
     Dates: start: 20141222, end: 20150205
  4. AZD2281 [Suspect]
     Active Substance: OLAPARIB
     Dosage: 300 MG, BID
     Route: 048
     Dates: start: 20150128, end: 20150421
  5. ESOMEPRAZOLE [Concomitant]
     Active Substance: ESOMEPRAZOLE
     Indication: GASTROOESOPHAGEAL REFLUX DISEASE
     Dosage: 20 MG, DAILY
     Route: 048
  6. COLOFAC [Concomitant]
     Active Substance: MEBEVERINE HYDROCHLORIDE
     Indication: DIVERTICULUM
     Dosage: 100 MG, BID
     Route: 048
  7. AZD2281 [Suspect]
     Active Substance: OLAPARIB
     Indication: BREAST CANCER
     Dosage: 300 MG, DAILY
     Route: 048
     Dates: start: 20141216, end: 20141216
  8. CO-AMOXICLAV [Concomitant]
     Active Substance: AMOXICILLIN\CLAVULANIC ACID
     Indication: LOWER RESPIRATORY TRACT INFECTION
     Dosage: 625 MG
     Route: 048
     Dates: start: 20150115
  9. MULTIVITAMIN [Concomitant]
     Active Substance: VITAMINS
     Indication: VITAMIN SUPPLEMENTATION
     Dosage: 1 DF, DAILY
     Route: 048
  10. DEXAMETHASONE. [Suspect]
     Active Substance: DEXAMETHASONE
     Dosage: 2 MG, QD
     Route: 048
     Dates: start: 20150220, end: 20150221
  11. DEXAMETHASONE. [Suspect]
     Active Substance: DEXAMETHASONE
     Dosage: 4 MG, QD
     Route: 048
     Dates: start: 20150217, end: 20150219
  12. AMLODIPINE [Concomitant]
     Active Substance: AMLODIPINE BESYLATE
     Indication: HYPERTENSION
     Dosage: 5 MG, DAILY
     Route: 048
  13. CANDESARTAN [Concomitant]
     Active Substance: CANDESARTAN
     Indication: HYPERTENSION
     Dosage: 2 MG, DAILY
     Route: 048
  14. CO-AMOXICLAV [Concomitant]
     Active Substance: AMOXICILLIN\CLAVULANIC ACID
     Indication: SINUSITIS
     Dosage: 5 ML
     Route: 048
     Dates: start: 20141224, end: 20141230
  15. DALTEPARIN [Concomitant]
     Active Substance: DALTEPARIN
     Indication: SUPERIOR VENA CAVA OCCLUSION
     Route: 058
     Dates: start: 20150207
  16. ATORVASTATIN [Concomitant]
     Active Substance: ATORVASTATIN
     Indication: HYPERCHOLESTEROLAEMIA
     Dosage: 10 MG, DAILY
     Route: 048
  17. DIFFLAM [Concomitant]
     Active Substance: BENZYDAMINE HYDROCHLORIDE
     Indication: STOMATITIS
     Dosage: 10 ML
     Route: 048
     Dates: start: 201410

REACTIONS (1)
  - Cognitive disorder [Recovered/Resolved]

NARRATIVE: CASE EVENT DATE: 20150218
